FAERS Safety Report 12425808 (Version 1)
Quarter: 2016Q2

REPORT INFORMATION
  Report Type: Spontaneous
  Country: FR (occurrence: FR)
  Receive Date: 20160601
  Receipt Date: 20160601
  Transmission Date: 20160815
  Serious: Yes (Hospitalization)
  Sender: FDA-Public Use
  Company Number: FR-PFIZER INC-2016281574

PATIENT
  Sex: Female

DRUGS (1)
  1. CELEBREX [Suspect]
     Active Substance: CELECOXIB
     Dosage: 200 MG, UNK

REACTIONS (6)
  - Anaphylactic shock [Unknown]
  - Paraesthesia oral [Unknown]
  - Vomiting [Unknown]
  - Abdominal pain [Unknown]
  - Pruritus generalised [Unknown]
  - Oedema [Unknown]
